FAERS Safety Report 7944766-2 (Version None)
Quarter: 2011Q4

REPORT INFORMATION
  Report Type: 
  Country: None (occurrence: None)
  Receive Date: 20111129
  Receipt Date: 20111122
  Transmission Date: 20120403
  Serious: Yes (Other)
  Sender: FDA-Public Use
  Company Number: US-PFIZER INC-2011264611

PATIENT
  Sex: Male
  Weight: 20 kg

DRUGS (5)
  1. GENOTROPIN [Suspect]
     Indication: GROWTH HORMONE DEFICIENCY
     Dosage: 1 MG, DAILY, 6 TIMES A WEEK
     Route: 058
     Dates: start: 20110907, end: 20110901
  2. ENALAPRIL [Concomitant]
     Indication: HEART DISEASE CONGENITAL
     Dosage: 5 MG, 2X/DAY
     Route: 048
     Dates: start: 20040101
  3. ACETYLSALICYLIC ACID [Concomitant]
     Indication: HEART DISEASE CONGENITAL
     Dosage: UNK
  4. GENOTROPIN [Suspect]
     Dosage: 1 MG, ALTERNATE DAY
     Route: 058
     Dates: start: 20111018
  5. ALDACTONE [Concomitant]
     Indication: PROTEIN-LOSING GASTROENTEROPATHY
     Dosage: 25 MG, 2X/DAY
     Route: 048

REACTIONS (5)
  - APNOEA [None]
  - OEDEMA [None]
  - FLUID RETENTION [None]
  - WEIGHT INCREASED [None]
  - SWELLING FACE [None]
